FAERS Safety Report 23406048 (Version 1)
Quarter: 2024Q1

REPORT INFORMATION
  Report Type: Spontaneous
  Country: CN (occurrence: CN)
  Receive Date: 20240116
  Receipt Date: 20240116
  Transmission Date: 20240410
  Serious: Yes (Life-Threatening, Other)
  Sender: FDA-Public Use
  Company Number: CN-BAYER-2024A006488

PATIENT
  Age: 58 Year
  Sex: Female
  Weight: 77 kg

DRUGS (2)
  1. ULTRAVIST [Suspect]
     Active Substance: IOPROMIDE
     Indication: Angiocardiogram
     Dosage: 65 ML, ONCE
     Route: 042
     Dates: start: 20240102, end: 20240102
  2. ULTRAVIST [Suspect]
     Active Substance: IOPROMIDE
     Indication: Arteriosclerosis coronary artery

REACTIONS (6)
  - Snoring [Recovering/Resolving]
  - Coma [Recovered/Resolved]
  - Altered state of consciousness [Recovered/Resolved]
  - Urinary incontinence [Recovering/Resolving]
  - Heart rate decreased [None]
  - Blood pressure systolic increased [None]

NARRATIVE: CASE EVENT DATE: 20240102
